FAERS Safety Report 5645104-0 (Version None)
Quarter: 2008Q1

REPORT INFORMATION
  Report Type: 
  Country: None (occurrence: None)
  Receive Date: 20080229
  Receipt Date: 20080218
  Transmission Date: 20080703
  Serious: Yes (Hospitalization)
  Sender: FDA-Public Use
  Company Number: JP-ROCHE-548704

PATIENT
  Age: 76 Year
  Sex: Female

DRUGS (4)
  1. COPEGUS [Suspect]
     Route: 048
     Dates: start: 20070327, end: 20070831
  2. PEGASYS [Suspect]
     Route: 058
     Dates: start: 20070327, end: 20080212
  3. URSO 250 [Suspect]
     Indication: DRUG USE FOR UNKNOWN INDICATION
     Dosage: FORM: ORAL FORMULATION.
     Route: 048
  4. BLOPRESS [Suspect]
     Indication: DRUG USE FOR UNKNOWN INDICATION
     Route: 048

REACTIONS (1)
  - APHASIA [None]
